FAERS Safety Report 18893400 (Version 1)
Quarter: 2021Q1

REPORT INFORMATION
  Report Type: Spontaneous
  Country: GB (occurrence: GB)
  Receive Date: 20210215
  Receipt Date: 20210215
  Transmission Date: 20210420
  Serious: Yes (Other)
  Sender: FDA-Public Use
  Company Number: GB-EMD SERONO-E2B_90082331

PATIENT
  Age: 34 Year
  Sex: Female
  Weight: 48 kg

DRUGS (1)
  1. METFORMIN HYDROCHLORIDE. [Suspect]
     Active Substance: METFORMIN HYDROCHLORIDE
     Indication: MENSTRUATION IRREGULAR
     Dosage: 1 PER DAY W/C 11TH JAN, 2 PER DAY W/C 18TH JAN + 3 PER DAY W/C 25TH JAN. ALL WITH OR JUST AFTER FOOD
     Route: 048
     Dates: start: 20210111, end: 20210128

REACTIONS (2)
  - Illness [Recovered/Resolved]
  - Nausea [Recovered/Resolved]

NARRATIVE: CASE EVENT DATE: 20210125
